FAERS Safety Report 8193889-4 (Version None)
Quarter: 2012Q1

REPORT INFORMATION
  Report Type: 
  Country: None (occurrence: None)
  Receive Date: 20120308
  Receipt Date: 20120305
  Transmission Date: 20120608
  Serious: Yes (Hospitalization)
  Sender: FDA-Public Use
  Company Number: PL-SANOFI-AVENTIS-200818020GDDC

PATIENT
  Age: 77 Year
  Sex: Male
  Weight: 90 kg

DRUGS (24)
  1. INSULIN ISOPHANE [Concomitant]
  2. DALTEPARIN SODIUM [Concomitant]
     Dosage: DOSE AS USED: UNK
     Dates: start: 20080919
  3. RESONIUM-CALCIUM [Concomitant]
     Dosage: DOSE AS USED: UNK
     Dates: start: 20081021, end: 20081021
  4. MEGESTROL ACETATE [Concomitant]
     Dosage: DOSE AS USED: UNK
     Dates: start: 20081105
  5. OMEPRAZOLE [Concomitant]
     Dates: start: 20080721
  6. FUROSEMIDE [Concomitant]
     Dosage: DOSE AS USED: UNK
     Dates: start: 20081021, end: 20081021
  7. ARANESP [Concomitant]
     Dosage: DOSE AS USED: UNK
     Dates: start: 20081113, end: 20081113
  8. AUGMENTIN '125' [Concomitant]
     Dosage: DOSE AS USED: UNK
     Dates: start: 20081126, end: 20081203
  9. BISOPROLOL FUMARATE [Concomitant]
  10. GOSERELIN [Concomitant]
     Indication: HORMONE REPLACEMENT THERAPY
     Dosage: DOSE AS USED: UNK
     Dates: start: 20071207
  11. SODIUM CHLORIDE [Concomitant]
     Dosage: DOSE AS USED: UNK
     Dates: start: 20080820, end: 20080820
  12. NEORECORMON ^BOEHRINGER MANNHEIM^ [Concomitant]
     Dosage: DOSE AS USED: UNK
     Dates: start: 20081014, end: 20081014
  13. PREDNISOLONE [Suspect]
     Route: 048
     Dates: start: 20080730, end: 20080820
  14. SODIUM CHLORIDE [Concomitant]
     Dosage: DOSE AS USED: 0.9%
     Dates: start: 20081021, end: 20081021
  15. CIPROFLOXACIN [Concomitant]
     Dosage: DOSE AS USED: UNK
     Dates: start: 20081105, end: 20081115
  16. ACETYLSALICYLIC ACID SRT [Concomitant]
  17. DILTIAZEM HCL [Concomitant]
  18. INSULIN [Concomitant]
  19. BLINDED THERAPY [Suspect]
     Dosage: DOSE UNIT: 6 MG/KG
     Route: 042
     Dates: start: 20080730, end: 20080730
  20. DOCETAXEL [Suspect]
     Dosage: DOSE UNIT: 75 MG/M**2
     Route: 042
     Dates: start: 20080730, end: 20080730
  21. LACTULOSE [Concomitant]
     Dosage: DOSE AS USED: UNK
     Dates: start: 20081113
  22. ORNITHINE ASPARTATE [Concomitant]
     Dosage: DOSE AS USED: UNK
     Dates: start: 20081104
  23. TIMONACIC [Concomitant]
     Dosage: DOSE AS USED: UNK
     Dates: start: 20081104
  24. POTASSIUM CHLORIDE [Concomitant]
     Dosage: DOSE AS USED: UNK
     Dates: start: 20080820, end: 20080820

REACTIONS (2)
  - HYPERGLYCAEMIA [None]
  - DEHYDRATION [None]
